FAERS Safety Report 5920357-X (Version None)
Quarter: 2008Q4

REPORT INFORMATION
  Report Type: 
  Country: None (occurrence: None)
  Receive Date: 20081016
  Receipt Date: 20081007
  Transmission Date: 20090506
  Serious: Yes (Hospitalization)
  Sender: FDA-Public Use
  Company Number: PHHY2008FR24107

PATIENT
  Age: 54 Year
  Sex: Female

DRUGS (4)
  1. TAREG [Suspect]
     Dosage: 80 MG, QD
     Route: 048
     Dates: start: 19991001, end: 20050901
  2. TAREG [Suspect]
     Dosage: 160 MG, QD
     Route: 048
     Dates: start: 20050901, end: 20080829
  3. ACETAMINOPHEN [Concomitant]
  4. NIFLURIL [Concomitant]

REACTIONS (3)
  - GENITAL HAEMORRHAGE [None]
  - HAEMATOMA [None]
  - THROMBOCYTOPENIA [None]
